FAERS Safety Report 24407966 (Version 1)
Quarter: 2024Q4

REPORT INFORMATION
  Report Type: Spontaneous
  Country: US (occurrence: US)
  Receive Date: 20241007
  Receipt Date: 20241007
  Transmission Date: 20250115
  Serious: No
  Sender: GUERBET
  Company Number: US-GUERBET / LLC-US-20240108

PATIENT
  Age: 45 Year
  Sex: Male
  Weight: 58.967 kg

DRUGS (1)
  1. OPTIRAY 350 [Suspect]
     Active Substance: IOVERSOL
     Indication: Computerised tomogram abdomen
     Route: 042
     Dates: start: 20240629, end: 20240629

REACTIONS (1)
  - Ear pruritus [Recovered/Resolved]

NARRATIVE: CASE EVENT DATE: 20240629
